FAERS Safety Report 7704410-6 (Version None)
Quarter: 2011Q3

REPORT INFORMATION
  Report Type: 
  Country: None (occurrence: None)
  Receive Date: 20110823
  Receipt Date: 20110818
  Transmission Date: 20111222
  Serious: Yes (Death)
  Sender: FDA-Public Use
  Company Number: FR-BRISTOL-MYERS SQUIBB COMPANY-15985187

PATIENT
  Age: 82 Year
  Sex: Male

DRUGS (10)
  1. FUNGIZONE [Suspect]
     Indication: ORAL FUNGAL INFECTION
     Route: 048
     Dates: start: 20110723, end: 20110729
  2. LOVENOX [Suspect]
     Indication: THROMBOSIS PROPHYLAXIS
     Dosage: AT BED TIME
     Route: 048
     Dates: start: 20110625, end: 20110728
  3. FUROSEMIDE [Suspect]
     Indication: HYPERTENSION
     Dosage: DIVISIBLE TABLET SHOULD TAKE IN THE MORNING
     Route: 048
     Dates: start: 20110625, end: 20110729
  4. IMOVANE [Concomitant]
     Dosage: AT BEDTIME
  5. FOLIC ACID [Suspect]
     Indication: FOLATE DEFICIENCY
     Route: 048
     Dates: start: 20110720, end: 20110729
  6. TRANSIPEG [Concomitant]
  7. NEXIUM [Suspect]
     Indication: PROPHYLAXIS AGAINST GASTROINTESTINAL ULCER
     Dosage: GASTRO RESISTANT TABLET
     Route: 048
     Dates: start: 20110625, end: 20110729
  8. BISOPROLOL FUMARATE [Suspect]
     Indication: TACHYCARDIA
     Route: 048
     Dates: start: 20110727, end: 20110729
  9. METFORMIN HCL [Suspect]
     Indication: TYPE 1 DIABETES MELLITUS
     Route: 048
     Dates: start: 20071201, end: 20110729
  10. ASPIRIN [Suspect]
     Dosage: SOLUTION
     Route: 048
     Dates: start: 20110611, end: 20110729

REACTIONS (2)
  - THROMBOCYTOPENIA [None]
  - HAEMORRHAGIC DISORDER [None]
